FAERS Safety Report 19003253 (Version 1)
Quarter: 2021Q1

REPORT INFORMATION
  Report Type: Report from Study
  Country: US (occurrence: US)
  Receive Date: 20210312
  Receipt Date: 20210312
  Transmission Date: 20210420
  Serious: Yes (Hospitalization, Other)
  Sender: FDA-Public Use
  Company Number: US-BRISTOL-MYERS SQUIBB COMPANY-BMS-2021-022327

PATIENT
  Age: 14 Year
  Sex: Male
  Weight: 63 kg

DRUGS (1)
  1. NIVOLUMAB [Suspect]
     Active Substance: NIVOLUMAB
     Indication: OSTEOSARCOMA
     Dosage: 190 MILLIGRAM
     Route: 065
     Dates: start: 20150901, end: 20151013

REACTIONS (6)
  - Pyrexia [Recovered/Resolved]
  - Urinary retention [Recovered/Resolved]
  - Oedema genital [Recovering/Resolving]
  - Pollakiuria [Recovered/Resolved]
  - Embolism [Not Recovered/Not Resolved]
  - Musculoskeletal pain [Recovered/Resolved]

NARRATIVE: CASE EVENT DATE: 20151011
